FAERS Safety Report 14426901 (Version 14)
Quarter: 2021Q1

REPORT INFORMATION
  Report Type: Spontaneous
  Country: NL (occurrence: NL)
  Receive Date: 20180123
  Receipt Date: 20210120
  Transmission Date: 20210419
  Serious: Yes (Life-Threatening, Hospitalization)
  Sender: FDA-Public Use
  Company Number: NL-TEVA-2018-NL-848285

PATIENT
  Age: 79 Year
  Sex: Male
  Weight: 73 kg

DRUGS (5)
  1. ALLOPURINOL TABLET 50MG ? NON?CURRENT DRUG / BRAND NAME NOT SPECIFIED [Suspect]
     Active Substance: ALLOPURINOL
     Indication: CRYSTALLURIA
     Dosage: 50 MILLIGRAM DAILY;
     Route: 065
     Dates: start: 20170614, end: 20170711
  2. COLCHICINE TABLET 0,5MG / BRAND NAME NOT SPECIFIED [Suspect]
     Active Substance: COLCHICINE
     Indication: CRYSTALLURIA
     Dosage: 1 DOSAGE FORMS DAILY;
     Route: 065
     Dates: start: 20170614, end: 20170711
  3. LERCANIDIPINE TABLET OMHULD 10MG / BRAND NAME NOT SPECIFIED [Suspect]
     Active Substance: LERCANIDIPINE
     Indication: HYPERTENSION
     Dosage: 10 MILLIGRAM DAILY; THERAPY END DATE : ASKU
     Route: 065
     Dates: start: 20170409
  4. PERINDOPRIL/INDAPAMIDE TABLET 4/1,25MG (ERBUMINE) / BRAND NAME NOT SPE [Suspect]
     Active Substance: INDAPAMIDE\PERINDOPRIL
     Indication: HYPERTENSION
     Dosage: 1 DOSAGE FORMS DAILY; THERAPY END DATE  :ASKU
     Route: 065
     Dates: start: 20170614
  5. MELATONINE / BRAND NAME NOT SPECIFIED [Concomitant]
     Active Substance: MELATONIN
     Dosage: THERAPY START DATE AND END DATE: ASKU

REACTIONS (6)
  - Respiratory failure [Recovered/Resolved]
  - Multiple organ dysfunction syndrome [Recovered/Resolved]
  - Leukopenia [Unknown]
  - Systemic inflammatory response syndrome [Unknown]
  - Thrombocytopenia [Unknown]
  - Asthenia [Recovered/Resolved]

NARRATIVE: CASE EVENT DATE: 201707
